FAERS Safety Report 9734786 (Version 2)
Quarter: 2016Q4

REPORT INFORMATION
  Report Type: Report from Study
  Country: GR (occurrence: GR)
  Receive Date: 20131206
  Receipt Date: 20161111
  Transmission Date: 20170207
  Serious: Yes (Other)
  Sender: FDA-Public Use
  Company Number: GR-ROCHE-1309769

PATIENT

DRUGS (1)
  1. OSELTAMIVIR [Suspect]
     Active Substance: OSELTAMIVIR
     Indication: INFLUENZA
     Route: 065

REACTIONS (9)
  - Sinusitis [Unknown]
  - Laryngitis [Unknown]
  - Tonsillitis [Unknown]
  - Lymphadenitis [Unknown]
  - Pericarditis [Unknown]
  - Pneumonia [Unknown]
  - Pharyngitis [Unknown]
  - Ear infection [Unknown]
  - Bronchitis [Unknown]
